FAERS Safety Report 8313254-6 (Version None)
Quarter: 2012Q2

REPORT INFORMATION
  Report Type: 
  Country: None (occurrence: None)
  Receive Date: 20120426
  Receipt Date: 20120419
  Transmission Date: 20120825
  Serious: Yes (Hospitalization)
  Sender: FDA-Public Use
  Company Number: DE-UCBSA-049984

PATIENT
  Age: 62 Year
  Sex: Female

DRUGS (3)
  1. VIMPAT [Suspect]
     Dates: start: 20110101
  2. KEPPRA [Suspect]
  3. DIOVAN [Concomitant]
     Dosage: UNKNOWN DOSE

REACTIONS (2)
  - TRIGEMINAL NEURALGIA [None]
  - MUSCLE SPASMS [None]
